FAERS Safety Report 16708731 (Version 1)
Quarter: 2019Q3

REPORT INFORMATION
  Report Type: Spontaneous
  Country: US (occurrence: US)
  Receive Date: 20190816
  Receipt Date: 20190816
  Transmission Date: 20191004
  Serious: No
  Sender: FDA-Public Use
  Company Number: US-BRISTOL-MYERS SQUIBB COMPANY-BMS-2019-073805

PATIENT
  Age: 64 Year
  Sex: Female

DRUGS (3)
  1. HYALURONIDASE [Concomitant]
     Active Substance: HYALURONIDASE
     Indication: THYROID DERMATOPATHY
     Dosage: UNK, QWK
     Route: 026
  2. LEVOTHYROXINE. [Concomitant]
     Active Substance: LEVOTHYROXINE
     Indication: HYPERTHYROIDISM
     Dosage: 100 MICROGRAM, 1 DAY
     Route: 065
  3. TRIAMCINOLONE ACETONIDE. [Suspect]
     Active Substance: TRIAMCINOLONE ACETONIDE
     Indication: THYROID DERMATOPATHY
     Dosage: 10-40MG/CC
     Route: 026

REACTIONS (3)
  - Osteopenia [Unknown]
  - Hypertension [Unknown]
  - Intentional product use issue [Unknown]
